FAERS Safety Report 17412544 (Version 1)
Quarter: 2020Q1

REPORT INFORMATION
  Report Type: Spontaneous
  Country: US (occurrence: US)
  Receive Date: 20200213
  Receipt Date: 20200213
  Transmission Date: 20200409
  Serious: Yes (Other)
  Sender: FDA-Public Use
  Company Number: US-SA-2020SA033585

PATIENT
  Age: 54 Year
  Sex: Female

DRUGS (1)
  1. AUBAGIO [Suspect]
     Active Substance: TERIFLUNOMIDE
     Dosage: 14 MG, QD

REACTIONS (5)
  - Multiple sclerosis relapse [Unknown]
  - Abdominal discomfort [Unknown]
  - Uhthoff^s phenomenon [Unknown]
  - Cerebral palsy [Unknown]
  - Faeces discoloured [Unknown]
